FAERS Safety Report 19962952 (Version 1)
Quarter: 2021Q4

REPORT INFORMATION
  Report Type: Spontaneous
  Country: US (occurrence: US)
  Receive Date: 20211013
  Receipt Date: 20211013
  Transmission Date: 20220303
  Serious: Yes (Life-Threatening)
  Sender: FDA-Public Use
  Company Number: None

PATIENT
  Age: 67 Year
  Sex: Male
  Weight: 95.25 kg

DRUGS (7)
  1. REGEN-COV [Suspect]
     Active Substance: CASIRIVIMAB\IMDEVIMAB
     Indication: COVID-19
     Dates: start: 20210110, end: 20210110
  2. INFLUENZA VIRUS VACCINE [Suspect]
     Active Substance: INFLUENZA VIRUS VACCINE
  3. OLMESARTAN [Concomitant]
     Active Substance: OLMESARTAN
  4. AMLODIPINE [Concomitant]
     Active Substance: AMLODIPINE BESYLATE
  5. Hcthiazid [Concomitant]
  6. Multi-vitamins [Concomitant]
  7. Centra-Vite Men^s Over 50 [Concomitant]

REACTIONS (7)
  - Nausea [None]
  - Blood pressure decreased [None]
  - Heart rate decreased [None]
  - Oxygen saturation decreased [None]
  - Cold sweat [None]
  - Dizziness [None]
  - Skin discolouration [None]

NARRATIVE: CASE EVENT DATE: 20211001
